FAERS Safety Report 5287261-4 (Version None)
Quarter: 2007Q2

REPORT INFORMATION
  Report Type: 
  Country: None (occurrence: None)
  Receive Date: 20070404
  Receipt Date: 20070323
  Transmission Date: 20071010
  Serious: Yes (Other)
  Sender: FDA-Public Use
  Company Number: US-PFIZER INC-2007024028

PATIENT
  Sex: Female
  Weight: 77.1 kg

DRUGS (2)
  1. DETROL LA [Suspect]
     Indication: RENAL DISORDER
  2. FAMOTIDINE [Concomitant]

REACTIONS (3)
  - DRY EYE [None]
  - DYSPNOEA [None]
  - HYPERHIDROSIS [None]
